FAERS Safety Report 6905169-2 (Version None)
Quarter: 2010Q3

REPORT INFORMATION
  Report Type: 
  Country: None (occurrence: None)
  Receive Date: 20100804
  Receipt Date: 20100323
  Transmission Date: 20110219
  Serious: Yes (Death, Other)
  Sender: FDA-Public Use
  Company Number: US-PFIZER INC-2009159317

PATIENT
  Sex: Male
  Weight: 103 kg

DRUGS (4)
  1. LYRICA [Suspect]
     Indication: BACK PAIN
     Dosage: 50 MG, 3X/DAY
     Dates: start: 20070305
  2. LYRICA [Suspect]
     Indication: FIBROMYALGIA
     Dosage: 100 MG, 1X/DAY
     Dates: start: 20070330
  3. LYRICA [Suspect]
     Dosage: 200 MG, 2X/DAY
     Dates: start: 20070430
  4. LYRICA [Suspect]
     Dosage: 200 MG, 3X/DAY
     Route: 048
     Dates: start: 20070716

REACTIONS (4)
  - ANXIETY [None]
  - COMPLETED SUICIDE [None]
  - DRUG INEFFECTIVE FOR UNAPPROVED INDICATION [None]
  - SUICIDAL IDEATION [None]
